FAERS Safety Report 4289320-1 (Version None)
Quarter: 2004Q1

REPORT INFORMATION
  Report Type: 
  Country: None (occurrence: None)
  Receive Date: 20040210
  Receipt Date: 20040202
  Transmission Date: 20041129
  Serious: Yes (Other)
  Sender: FDA-Public Use
  Company Number: PHBS2004ZA01554

PATIENT
  Sex: Female

DRUGS (2)
  1. LAMISIL [Suspect]
     Dosage: 250 MG/D
     Route: 048
  2. CIPRAMIL [Concomitant]
     Dosage: 10 MG/D

REACTIONS (4)
  - DEPRESSION [None]
  - PAIN [None]
  - PARAESTHESIA [None]
  - SCRATCH [None]
